FAERS Safety Report 7460090-9 (Version None)
Quarter: 2011Q2

REPORT INFORMATION
  Report Type: 
  Country: None (occurrence: None)
  Receive Date: 20110505
  Receipt Date: 20110428
  Transmission Date: 20111010
  Serious: Yes (Life-Threatening)
  Sender: FDA-Public Use
  Company Number: PHFR2011GB02843

PATIENT
  Age: 12 Year
  Sex: Female
  Weight: 27 kg

DRUGS (1)
  1. OCTREOTIDE ACETATE [Suspect]
     Dosage: 19 UG, UNK
     Route: 042
     Dates: start: 20110403

REACTIONS (1)
  - RESPIRATORY ARREST [None]
